FAERS Safety Report 20949659 (Version 3)
Quarter: 2022Q2

REPORT INFORMATION
  Report Type: Other
  Country: US (occurrence: None)
  Receive Date: 20220613
  Receipt Date: 20220630
  Transmission Date: 20220721
  Serious: Yes (Death)
  Sender: FDA-Public Use
  Company Number: US-ROCHE-3042557

PATIENT
  Age: 96 Year
  Sex: Male

DRUGS (8)
  1. XELODA [Suspect]
     Active Substance: CAPECITABINE
     Indication: Oesophageal carcinoma
     Dosage: XELODA 500 MG: TAKE 3 TABLETS, 2 TIMES PER DAY FOR 14 DAYS, TAKE 3 TABLETS BY MOUTH TWICE A DAY 2 WE
     Route: 048
  2. KEYTRUDA [Concomitant]
     Active Substance: PEMBROLIZUMAB
  3. PEPCID [Concomitant]
     Active Substance: FAMOTIDINE
  4. FLONASE [Concomitant]
     Active Substance: FLUTICASONE PROPIONATE
  5. CLARITIN [Concomitant]
     Active Substance: LORATADINE
  6. ZOLOFT [Concomitant]
     Active Substance: SERTRALINE HYDROCHLORIDE
  7. ARICEPT [Concomitant]
     Active Substance: DONEPEZIL HYDROCHLORIDE
  8. CHRONULAC [Concomitant]
     Active Substance: LACTULOSE

REACTIONS (3)
  - Off label use [Unknown]
  - Oesophageal carcinoma [Fatal]
  - Respiratory failure [Fatal]

NARRATIVE: CASE EVENT DATE: 20220530
